FAERS Safety Report 9779935 (Version 2)
Quarter: 2014Q1

REPORT INFORMATION
  Report Type: Spontaneous
  Country: US (occurrence: US)
  Receive Date: 20131223
  Receipt Date: 20140218
  Transmission Date: 20141002
  Serious: Yes (Life-Threatening, Hospitalization, Disabling, Other)
  Sender: FDA-Public Use
  Company Number: US-GLAXOSMITHKLINE-A1053931A

PATIENT
  Age: 64 Year
  Sex: Female
  Weight: 50.5 kg

DRUGS (2)
  1. BENLYSTA [Suspect]
     Indication: PRODUCT USED FOR UNKNOWN INDICATION
     Route: 065
     Dates: end: 20131119
  2. METHOTREXATE [Concomitant]
     Dates: end: 20131119

REACTIONS (11)
  - Pneumonia [Recovering/Resolving]
  - Pneumocystis jirovecii pneumonia [Recovered/Resolved]
  - Pulmonary mycosis [Recovering/Resolving]
  - Tracheostomy [Recovering/Resolving]
  - Malaise [Recovering/Resolving]
  - Nervous system disorder [Recovering/Resolving]
  - White blood cell count decreased [Recovering/Resolving]
  - Sepsis [Recovered/Resolved]
  - Systemic candida [Recovered/Resolved]
  - Endotracheal intubation [Recovering/Resolving]
  - Septic shock [Recovering/Resolving]
